FAERS Safety Report 21545824 (Version 2)
Quarter: 2022Q4

REPORT INFORMATION
  Report Type: Report from Study
  Country: BR (occurrence: BR)
  Receive Date: 20221103
  Receipt Date: 20221127
  Transmission Date: 20230113
  Serious: Yes (Other)
  Sender: FDA-Public Use
  Company Number: BR-JNJFOC-20221053355

PATIENT
  Sex: Male
  Weight: 90 kg

DRUGS (1)
  1. INFLIXIMAB [Suspect]
     Active Substance: INFLIXIMAB
     Indication: Colitis ulcerative
     Dosage: STARTED WITH 5 BOTTLES AND AT END OF THE YEAR INCREASED TO 10 BOTTLES.
     Route: 041

REACTIONS (2)
  - Tuberculosis [Unknown]
  - Therapeutic response decreased [Unknown]
